FAERS Safety Report 8401038-X (Version None)
Quarter: 2012Q2

REPORT INFORMATION
  Report Type: 
  Country: None (occurrence: None)
  Receive Date: 20120525
  Receipt Date: 20120515
  Transmission Date: 20120825
  Serious: Yes (Other)
  Sender: FDA-Public Use
  Company Number: 1270592

PATIENT
  Age: 64 Year
  Sex: Male
  Weight: 198 kg

DRUGS (1)
  1. CORLOPAM [Suspect]
     Indication: BLOOD PRESSURE INADEQUATELY CONTROLLED
     Dosage: CI,INTRAVENOUS (NOT OTHERWISE SPECIFIED)
     Route: 042
     Dates: start: 20120423, end: 20120427

REACTIONS (3)
  - HYPERTENSION [None]
  - NO THERAPEUTIC RESPONSE [None]
  - FLUID OVERLOAD [None]
